FAERS Safety Report 5002608-1 (Version None)
Quarter: 2006Q2

REPORT INFORMATION
  Report Type: 
  Country: None (occurrence: None)
  Receive Date: 20060510
  Receipt Date: 20060503
  Transmission Date: 20061013
  Serious: Yes (Other)
  Sender: FDA-Public Use
  Company Number: 2006059744

PATIENT
  Age: 3 Year
  Sex: Male
  Weight: 16 kg

DRUGS (1)
  1. PHENYTOIN [Suspect]
     Indication: EPILEPSY
     Dosage: (18 ML, 1 D), ORAL
     Route: 048
     Dates: start: 19880601, end: 19880823

REACTIONS (5)
  - FATIGUE [None]
  - HEPATOSPLENOMEGALY [None]
  - JAUNDICE [None]
  - LYMPHADENOPATHY [None]
  - RASH [None]
